FAERS Safety Report 7893525-8 (Version None)
Quarter: 2011Q4

REPORT INFORMATION
  Report Type: 
  Country: None (occurrence: None)
  Receive Date: 20111104
  Receipt Date: 20111101
  Transmission Date: 20120403
  Serious: Yes (Death)
  Sender: FDA-Public Use
  Company Number: US-AMGEN-USASP2011052950

PATIENT
  Sex: Male

DRUGS (3)
  1. IMMUNE GLOBULIN NOS [Concomitant]
     Indication: AUTOIMMUNE THROMBOCYTOPENIA
  2. NPLATE [Suspect]
     Indication: AUTOIMMUNE THROMBOCYTOPENIA
     Dosage: UNK
     Dates: start: 20081022, end: 20101015
  3. NPLATE [Suspect]
     Indication: IDIOPATHIC THROMBOCYTOPENIC PURPURA

REACTIONS (2)
  - DEMENTIA ALZHEIMER'S TYPE [None]
  - FALL [None]
